FAERS Safety Report 6178545-6 (Version None)
Quarter: 2009Q2

REPORT INFORMATION
  Report Type: 
  Country: None (occurrence: None)
  Receive Date: 20090504
  Receipt Date: 20090428
  Transmission Date: 20091009
  Serious: Yes (Death)
  Sender: FDA-Public Use
  Company Number: JP-GILEAD-2009-0021722

PATIENT
  Sex: Male
  Weight: 88 kg

DRUGS (3)
  1. TRUVADA [Suspect]
     Indication: HIV INFECTION
     Route: 048
     Dates: start: 20061213, end: 20080503
  2. REYATAZ [Suspect]
     Indication: HIV INFECTION
     Route: 048
     Dates: start: 20061213, end: 20080503
  3. NORVIR [Suspect]
     Indication: HIV INFECTION
     Route: 048
     Dates: start: 20061212, end: 20080503

REACTIONS (2)
  - DEATH [None]
  - INTRA-ABDOMINAL HAEMORRHAGE [None]
